FAERS Safety Report 7031493-1 (Version None)
Quarter: 2010Q4

REPORT INFORMATION
  Report Type: 
  Country: None (occurrence: None)
  Receive Date: 20101006
  Receipt Date: 20101006
  Transmission Date: 20110411
  Serious: Yes (Other)
  Sender: FDA-Public Use
  Company Number: None

PATIENT
  Sex: Female
  Weight: 74.5 kg

DRUGS (10)
  1. OMEPRAZOLE [Suspect]
     Indication: GASTROOESOPHAGEAL REFLUX DISEASE
     Dosage: 40MG CAPSULE BID PO
     Route: 048
     Dates: start: 20100910, end: 20100921
  2. PROPRANOLOL [Concomitant]
  3. LEVOXYL [Concomitant]
  4. LIPITOR [Concomitant]
  5. VIT D [Concomitant]
  6. ASPIRIN [Concomitant]
  7. CA+VIT D [Concomitant]
  8. M.V.I. [Concomitant]
  9. LYSINE [Concomitant]
  10. GLUCOSAMINE/CHONDROITIN [Concomitant]

REACTIONS (4)
  - COUGH [None]
  - DISEASE RECURRENCE [None]
  - NAUSEA [None]
  - PRODUCT SUBSTITUTION ISSUE [None]
